FAERS Safety Report 10254332 (Version 1)
Quarter: 2014Q2

REPORT INFORMATION
  Report Type: Spontaneous
  Country: AT (occurrence: AT)
  Receive Date: 20140624
  Receipt Date: 20140624
  Transmission Date: 20141212
  Serious: Yes (Hospitalization)
  Sender: FDA-Public Use
  Company Number: AT-AMGEN INC.-AUTSP2014046782

PATIENT
  Sex: Male

DRUGS (1)
  1. ENBREL [Suspect]
     Indication: RHEUMATOID ARTHRITIS
     Dosage: 25 MG, UNK, ONCE EVERY FOUR WEEKS
     Route: 058
     Dates: start: 201010

REACTIONS (1)
  - Sick sinus syndrome [Recovered/Resolved]
